FAERS Safety Report 16083385 (Version 1)
Quarter: 2019Q1

REPORT INFORMATION
  Report Type: Spontaneous
  Country: ZA (occurrence: ZA)
  Receive Date: 20190318
  Receipt Date: 20190318
  Transmission Date: 20190418
  Serious: Yes (Hospitalization)
  Sender: FDA-Public Use
  Company Number: ZA-ACCORD-114217

PATIENT
  Sex: Male

DRUGS (1)
  1. OXALIPLATIN ACCORD [Suspect]
     Active Substance: OXALIPLATIN
     Indication: PRODUCT USED FOR UNKNOWN INDICATION

REACTIONS (7)
  - Dysarthria [Unknown]
  - Condition aggravated [Unknown]
  - Gait inability [Unknown]
  - Skin reaction [Unknown]
  - Incoherent [Unknown]
  - Confusional state [Unknown]
  - Infusion related reaction [Unknown]
